FAERS Safety Report 25935870 (Version 1)
Quarter: 2025Q4

REPORT INFORMATION
  Report Type: Spontaneous
  Country: US (occurrence: US)
  Receive Date: 20251017
  Receipt Date: 20251017
  Transmission Date: 20260117
  Serious: No
  Sender: TEVA
  Company Number: US-TEVA-VS-3378154

PATIENT

DRUGS (2)
  1. UZEDY [Suspect]
     Active Substance: RISPERIDONE
     Indication: Schizophrenia
     Dosage: 100 OR 125MG
     Route: 065
  2. UZEDY [Suspect]
     Active Substance: RISPERIDONE
     Dosage: 100 OR 125MG
     Route: 065

REACTIONS (2)
  - Therapeutic response shortened [Unknown]
  - Product use issue [Unknown]
